FAERS Safety Report 5512286-0 (Version None)
Quarter: 2007Q4

REPORT INFORMATION
  Report Type: 
  Country: None (occurrence: None)
  Receive Date: 20071112
  Receipt Date: 20070927
  Transmission Date: 20080405
  Serious: No
  Sender: FDA-Public Use
  Company Number: A0682714A

PATIENT
  Age: 66 Year
  Sex: Female

DRUGS (4)
  1. VERAMYST [Suspect]
     Indication: RESPIRATORY TRACT CONGESTION
     Dosage: 2SPR TWICE PER DAY
     Route: 045
     Dates: start: 20070827, end: 20070910
  2. ERYTHROMYCIN [Concomitant]
  3. LOVASTATIN [Concomitant]
  4. ZITHROMAX [Concomitant]

REACTIONS (4)
  - NASAL MUCOSAL DISORDER [None]
  - NASAL ULCER [None]
  - POSTNASAL DRIP [None]
  - SINUS HEADACHE [None]
